FAERS Safety Report 4308829-5 (Version None)
Quarter: 2004Q1

REPORT INFORMATION
  Report Type: 
  Country: None (occurrence: None)
  Receive Date: 20040227
  Receipt Date: 20040223
  Transmission Date: 20041129
  Serious: Yes (Hospitalization, Other)
  Sender: FDA-Public Use
  Company Number: 2004-00738

PATIENT
  Age: 49 Year
  Sex: Female
  Weight: 72.6 kg

DRUGS (4)
  1. FERRLECIT [Suspect]
     Indication: IRON DEFICIENCY
     Dosage: 250 MG, IN 250 OVER 2 HRS, INTRAVENOUS
     Route: 042
     Dates: start: 20031013, end: 20031013
  2. PREDNISONE [Concomitant]
  3. MESTINON [Concomitant]
  4. PREVACID [Concomitant]

REACTIONS (10)
  - BLOOD PRESSURE DECREASED [None]
  - CARDIO-RESPIRATORY ARREST [None]
  - DIZZINESS [None]
  - HYPERHIDROSIS [None]
  - INTENTIONAL MISUSE [None]
  - LOSS OF CONSCIOUSNESS [None]
  - OVERDOSE [None]
  - PARAESTHESIA [None]
  - PULSE PRESSURE DECREASED [None]
  - URTICARIA [None]
